FAERS Safety Report 7576120 (Version 4)
Quarter: 2014Q3

REPORT INFORMATION
  Report Type: Spontaneous
  Country: US (occurrence: None)
  Receive Date: 20100823
  Receipt Date: 20140904
  Transmission Date: 20150326
  Serious: Yes (Other)
  Sender: FDA-Public Use
  Company Number: 2010US002644

PATIENT
  Age: 66 Year
  Sex: Female
  Weight: 86 kg

DRUGS (14)
  1. INSULIN NPH (INSULIN ISOPHANE BOVINE) [Concomitant]
  2. VENTOLIN [Concomitant]
     Active Substance: ALBUTEROL SULFATE
  3. TRICOR [Concomitant]
     Active Substance: FENOFIBRATE
  4. IMMUNOSUPPRESSIVE AGENT [Suspect]
     Active Substance: UNSPECIFIED INGREDIENT
     Indication: IMMUNOSUPPRESSANT DRUG THERAPY
     Dosage: UNK, UNKNOWN FREQ., UNKNOWN?
  5. LOPRESSOR [Concomitant]
     Active Substance: METOPROLOL TARTRATE
  6. MYCOPHENOLIC ACID [Concomitant]
     Active Substance: MYCOPHENOLIC ACID
  7. PLAVIX (CLOPIDOGREL) FORMLATION [Concomitant]
  8. PROGRAF [Suspect]
     Active Substance: TACROLIMUS\TACROLIMUS ANHYDROUS
     Indication: LIVER TRANSPLANT
     Dosage: 2 MG, ONCE DAY, ORAL
     Route: 048
  9. NASONEX [Concomitant]
     Active Substance: MOMETASONE FUROATE
  10. IMDUR (ISOSORBIDE MONONITRATE) TABLET [Concomitant]
  11. PROCARDIA [Concomitant]
     Active Substance: NIFEDIPINE
  12. LEVOTHYROXINE (LEVOTHYROXINE) [Concomitant]
     Active Substance: LEVOTHYROXINE
  13. ASPIRIN (ACETYLSALICYLIC ACID) [Concomitant]
     Active Substance: ASPIRIN
  14. MULTIVITAMIN  (ASCORBIC ACID, CALCIUM PANTOTHENATE, ERGOCALCIFEROL, NICOTINAMIDE, PYRIDOXINE HYDROCHLORIDE, RETINOL, RIBOFLAVIN, THIAMINE HYDROCHLORIDE) FORMULATION [Concomitant]

REACTIONS (6)
  - Condition aggravated [None]
  - Dialysis [None]
  - Nephropathy toxic [None]
  - Diabetes mellitus [None]
  - Off label use [None]
  - Diabetic nephropathy [None]

NARRATIVE: CASE EVENT DATE: 20100606
